FAERS Safety Report 14593641 (Version 2)
Quarter: 2018Q1

REPORT INFORMATION
  Report Type: Spontaneous
  Country: IT (occurrence: IT)
  Receive Date: 20180302
  Receipt Date: 20180307
  Transmission Date: 20180509
  Serious: Yes (Hospitalization, Other)
  Sender: FDA-Public Use
  Company Number: IT-PFIZER INC-2017266083

PATIENT
  Age: 48 Year
  Sex: Male

DRUGS (3)
  1. AKINETON [Suspect]
     Active Substance: BIPERIDEN HYDROCHLORIDE
     Dosage: 2 MG, SINGLE
     Route: 048
  2. TAVOR (LORAZEPAM) [Suspect]
     Active Substance: LORAZEPAM
     Dosage: 2 MG, SINGLE
     Route: 048
  3. VALDORM /00246102/ [Suspect]
     Active Substance: FLURAZEPAM HYDROCHLORIDE
     Dosage: 300 MG, SINGLE
     Route: 048

REACTIONS (3)
  - Psychomotor retardation [Unknown]
  - Intentional self-injury [Unknown]
  - Drug abuse [Unknown]

NARRATIVE: CASE EVENT DATE: 20170516
